FAERS Safety Report 10889677 (Version 3)
Quarter: 2015Q2

REPORT INFORMATION
  Report Type: Spontaneous
  Country: JP (occurrence: JP)
  Receive Date: 20150306
  Receipt Date: 20150423
  Transmission Date: 20150821
  Serious: Yes (Hospitalization)
  Sender: FDA-Public Use
  Company Number: JP-ROCHE-1548506

PATIENT
  Age: 85 Year
  Sex: Female
  Weight: 53 kg

DRUGS (8)
  1. SULBACILLIN (JAPAN) [Concomitant]
     Active Substance: AMPICILLIN SODIUM\SULBACTAM SODIUM
     Indication: PNEUMONIA
     Route: 042
     Dates: start: 20150221, end: 20150221
  2. AUGMENTIN [Concomitant]
     Active Substance: AMOXICILLIN\CLAVULANATE POTASSIUM
     Indication: PNEUMONIA
     Route: 048
     Dates: start: 20150220, end: 20150220
  3. SULBACILLIN (JAPAN) [Concomitant]
     Active Substance: AMPICILLIN SODIUM\SULBACTAM SODIUM
     Indication: PNEUMONIA
     Route: 042
     Dates: start: 20150220, end: 20150220
  4. CEFTRIAXONE SODIUM. [Concomitant]
     Active Substance: CEFTRIAXONE SODIUM
     Indication: PNEUMONIA
     Dosage: REPORTED AS CEFTRIAXONE SODIUM HYDRATE
     Route: 042
     Dates: start: 20150222, end: 20150225
  5. TAMIFLU [Suspect]
     Active Substance: OSELTAMIVIR PHOSPHATE
     Indication: INFLUENZA
     Route: 048
     Dates: start: 20150220, end: 20150222
  6. PENTCILLIN [Concomitant]
     Active Substance: PIPERACILLIN SODIUM
     Indication: PNEUMONIA
     Route: 042
     Dates: start: 20150220, end: 20150220
  7. RAPIACTA [Suspect]
     Active Substance: PERAMIVIR
     Dosage: RECEIVED MOST RECENT DOSE ON 22/FEB/2015
     Route: 041
     Dates: start: 20150222
  8. RAPIACTA [Suspect]
     Active Substance: PERAMIVIR
     Indication: PNEUMONIA
     Route: 041
     Dates: start: 20150220, end: 20150220

REACTIONS (1)
  - Interstitial lung disease [Recovering/Resolving]

NARRATIVE: CASE EVENT DATE: 20150225
